FAERS Safety Report 7400024-6 (Version None)
Quarter: 2011Q2

REPORT INFORMATION
  Report Type: 
  Country: None (occurrence: None)
  Receive Date: 20110407
  Receipt Date: 20110329
  Transmission Date: 20111010
  Serious: Yes (Death, Hospitalization)
  Sender: FDA-Public Use
  Company Number: FR-JNJFOC-20110400102

PATIENT
  Sex: Female

DRUGS (11)
  1. HEMIGOXINE NATIVELLE [Suspect]
     Indication: PRODUCT USED FOR UNKNOWN INDICATION
     Dosage: 1-0-0
     Route: 048
     Dates: end: 20100619
  2. DEROXAT [Concomitant]
     Indication: PRODUCT USED FOR UNKNOWN INDICATION
     Dosage: 1-0-0
     Route: 048
  3. INNOHEP [Concomitant]
     Indication: PRODUCT USED FOR UNKNOWN INDICATION
     Route: 058
  4. DURAGESIC-100 [Suspect]
     Indication: METASTATIC PAIN
     Route: 062
     Dates: start: 20100608
  5. NEXIUM [Concomitant]
     Indication: PRODUCT USED FOR UNKNOWN INDICATION
     Dosage: 1-0-0
     Route: 048
  6. DURAGESIC-100 [Suspect]
     Route: 062
     Dates: start: 20100608
  7. CARDENSIEL [Concomitant]
     Indication: PRODUCT USED FOR UNKNOWN INDICATION
     Dosage: 1-0-0
     Route: 048
  8. LASIX [Concomitant]
     Indication: PRODUCT USED FOR UNKNOWN INDICATION
     Dosage: 1/4-0-0
     Route: 048
  9. VOLTAREN [Concomitant]
     Indication: PRODUCT USED FOR UNKNOWN INDICATION
     Dosage: 1-0-1
     Route: 048
     Dates: start: 20091201
  10. DURAGESIC-100 [Suspect]
     Route: 062
     Dates: start: 20100608
  11. FEMARA [Concomitant]
     Indication: PRODUCT USED FOR UNKNOWN INDICATION
     Route: 048
     Dates: start: 20091201

REACTIONS (9)
  - SPEECH DISORDER [None]
  - HALLUCINATION [None]
  - ANXIETY [None]
  - CONFUSIONAL STATE [None]
  - DELIRIUM [None]
  - DYSPNOEA [None]
  - BREAST CANCER [None]
  - HYPERHIDROSIS [None]
  - PALLOR [None]
